FAERS Safety Report 25401061 (Version 1)
Quarter: 2025Q2

REPORT INFORMATION
  Report Type: Report from Study
  Country: DE (occurrence: DE)
  Receive Date: 20250605
  Receipt Date: 20250605
  Transmission Date: 20250717
  Serious: Yes (Hospitalization, Other)
  Sender: SANDOZ
  Company Number: DE-002147023-NVSC2021DE139042

PATIENT
  Sex: Male

DRUGS (27)
  1. ETANERCEPT [Suspect]
     Active Substance: ETANERCEPT
     Indication: Axial spondyloarthritis
     Dosage: 50 MG, QW
     Route: 065
     Dates: end: 20230328
  2. ETANERCEPT [Suspect]
     Active Substance: ETANERCEPT
     Dosage: 50 MG, QW
     Route: 065
     Dates: start: 20240220, end: 20240312
  3. ETANERCEPT [Suspect]
     Active Substance: ETANERCEPT
     Dosage: 50 MG, QW
     Route: 065
     Dates: start: 20240507, end: 20240702
  4. ETANERCEPT [Suspect]
     Active Substance: ETANERCEPT
     Dosage: 50 MG, QW
     Route: 065
  5. ETANERCEPT [Suspect]
     Active Substance: ETANERCEPT
     Route: 065
     Dates: start: 20190806, end: 20190910
  6. ETANERCEPT [Suspect]
     Active Substance: ETANERCEPT
     Route: 065
     Dates: start: 20190917, end: 20191024
  7. ETANERCEPT [Suspect]
     Active Substance: ETANERCEPT
     Route: 065
     Dates: start: 20191126, end: 20200707
  8. ETANERCEPT [Suspect]
     Active Substance: ETANERCEPT
     Route: 065
     Dates: start: 20200728, end: 20201006
  9. ETANERCEPT [Suspect]
     Active Substance: ETANERCEPT
     Route: 065
     Dates: start: 20201103, end: 20211110
  10. ETANERCEPT [Suspect]
     Active Substance: ETANERCEPT
     Route: 065
     Dates: start: 20211208, end: 20220215
  11. ETANERCEPT [Suspect]
     Active Substance: ETANERCEPT
     Route: 065
     Dates: start: 20220315, end: 20220701
  12. ETANERCEPT [Suspect]
     Active Substance: ETANERCEPT
     Route: 065
     Dates: start: 20220716, end: 20221001
  13. ETANERCEPT [Suspect]
     Active Substance: ETANERCEPT
     Route: 065
     Dates: start: 20221021, end: 20230131
  14. ETANERCEPT [Suspect]
     Active Substance: ETANERCEPT
     Route: 065
     Dates: start: 20230221, end: 20230328
  15. ETANERCEPT [Suspect]
     Active Substance: ETANERCEPT
     Route: 065
     Dates: start: 20230425, end: 20231205
  16. ETANERCEPT [Suspect]
     Active Substance: ETANERCEPT
     Route: 065
     Dates: start: 20231226, end: 20240130
  17. ETANERCEPT [Suspect]
     Active Substance: ETANERCEPT
     Route: 065
     Dates: start: 20240220, end: 20240312
  18. ETANERCEPT [Suspect]
     Active Substance: ETANERCEPT
     Route: 065
     Dates: start: 20240507, end: 20240702
  19. ETANERCEPT [Suspect]
     Active Substance: ETANERCEPT
     Route: 065
     Dates: end: 20190523
  20. ETANERCEPT [Suspect]
     Active Substance: ETANERCEPT
     Route: 065
     Dates: end: 20190910
  21. ETANERCEPT [Suspect]
     Active Substance: ETANERCEPT
     Route: 065
     Dates: end: 20191024
  22. ETANERCEPT [Suspect]
     Active Substance: ETANERCEPT
     Route: 065
     Dates: end: 20200707
  23. ETANERCEPT [Suspect]
     Active Substance: ETANERCEPT
     Route: 065
     Dates: end: 20201006
  24. ETANERCEPT [Suspect]
     Active Substance: ETANERCEPT
     Route: 065
  25. IDACIO [Concomitant]
     Active Substance: ADALIMUMAB-AACF
     Indication: Product used for unknown indication
     Dosage: 40 MG, Q2W
     Route: 065
     Dates: start: 20240712
  26. SIMPONI [Concomitant]
     Active Substance: GOLIMUMAB
     Indication: Product used for unknown indication
     Route: 065
     Dates: start: 20190325, end: 20190523
  27. SIMPONI [Concomitant]
     Active Substance: GOLIMUMAB
     Route: 065
     Dates: start: 20190325

REACTIONS (20)
  - Hypertensive crisis [Unknown]
  - Osteoarthritis [Unknown]
  - Axial spondyloarthritis [Unknown]
  - Spinal pain [Recovered/Resolved]
  - Colitis [Unknown]
  - Colitis ulcerative [Unknown]
  - Haematochezia [Unknown]
  - Eczema [Unknown]
  - Nasal turbinate hypertrophy [Unknown]
  - COVID-19 [Unknown]
  - Osteopenia [Unknown]
  - Fatigue [Unknown]
  - Anxiety [Unknown]
  - Influenza like illness [Unknown]
  - Oral herpes [Unknown]
  - Oral herpes [Unknown]
  - Oral herpes [Unknown]
  - Hypercholesterolaemia [Unknown]
  - Biliary cyst [Unknown]
  - COVID-19 [Unknown]

NARRATIVE: CASE EVENT DATE: 20200129
